FAERS Safety Report 15287892 (Version 6)
Quarter: 2021Q3

REPORT INFORMATION
  Report Type: Spontaneous
  Country: US (occurrence: US)
  Receive Date: 20180817
  Receipt Date: 20210813
  Transmission Date: 20211014
  Serious: Yes (Other)
  Sender: FDA-Public Use
  Company Number: US-PFIZER INC-2016348566

PATIENT
  Age: 34 Year
  Sex: Male
  Weight: 99.77 kg

DRUGS (5)
  1. LYRICA [Suspect]
     Active Substance: PREGABALIN
     Indication: INTERVERTEBRAL DISC DEGENERATION
     Dosage: 3 DF, DAILY (3 PILLS A DAY)
  2. LYRICA [Suspect]
     Active Substance: PREGABALIN
     Indication: BACK DISORDER
     Dosage: 200 MG, 3X/DAY
     Route: 048
     Dates: end: 20180725
  3. LYRICA [Suspect]
     Active Substance: PREGABALIN
     Indication: INTERVERTEBRAL DISC PROTRUSION
  4. LYRICA [Suspect]
     Active Substance: PREGABALIN
     Indication: SPINAL STENOSIS
  5. LYRICA [Suspect]
     Active Substance: PREGABALIN
     Indication: SCIATICA
     Dosage: 200 MG, 3X/DAY
     Route: 048

REACTIONS (7)
  - Post procedural infection [Unknown]
  - Drug withdrawal syndrome [Not Recovered/Not Resolved]
  - Irritability [Unknown]
  - Lethargy [Not Recovered/Not Resolved]
  - Illness [Unknown]
  - Mood altered [Unknown]
  - Intentional product use issue [Unknown]

NARRATIVE: CASE EVENT DATE: 202107
